FAERS Safety Report 23218172 (Version 1)
Quarter: 2023Q4

REPORT INFORMATION
  Report Type: Spontaneous
  Country: PT (occurrence: PT)
  Receive Date: 20231122
  Receipt Date: 20231122
  Transmission Date: 20240110
  Serious: Yes (Life-Threatening)
  Sender: FDA-Public Use
  Company Number: None

PATIENT
  Age: 70 Year
  Sex: Female
  Weight: 74.5 kg

DRUGS (13)
  1. OXALIPLATIN [Suspect]
     Active Substance: OXALIPLATIN
     Indication: Rectal neoplasm
     Dosage: 235 MG (130MG/M2) IV EVERY 21 DAYS?FORM OF ADMIN.- CONCENTRATE FOR SOLUTION FOR INFUSION?ROUTE OF AD
     Route: 042
     Dates: start: 20231030
  2. CAPECITABINE [Concomitant]
     Active Substance: CAPECITABINE
     Indication: Product used for unknown indication
     Dosage: FORM OF ADMIN.- FILM-COATED TABLET?ROUTE OF ADMIN.- ORAL
  3. APREPITANT [Concomitant]
     Active Substance: APREPITANT
     Indication: Product used for unknown indication
     Dosage: ROUTE OF ADMIN.- ORAL
  4. Salofalk [Concomitant]
     Indication: Product used for unknown indication
  5. LATANOPROST [Concomitant]
     Active Substance: LATANOPROST
     Indication: Product used for unknown indication
     Dosage: ROUTE OF ADMIN.- OPHTHALMIC USE
  6. LERCANIDIPINE [Concomitant]
     Active Substance: LERCANIDIPINE
     Indication: Product used for unknown indication
     Dosage: ROUTE OF ADMIN.- ORAL
  7. PANTOPRAZOLE [Concomitant]
     Active Substance: PANTOPRAZOLE
     Indication: Product used for unknown indication
     Dosage: ROUTE OF ADMIN.- ORAL
  8. SULFASALAZINE [Concomitant]
     Active Substance: SULFASALAZINE
     Indication: Product used for unknown indication
     Dosage: ROUTE OF ADMIN.- ORAL?FORM OF ADMIN. - GASTRO-RESISTANT TABLET
  9. DEXAMETHASONE [Concomitant]
     Active Substance: DEXAMETHASONE
     Indication: Product used for unknown indication
     Dosage: ROUTE OF ADMIN.- INTRAVENOUS (NOT OTHERWISE SPECIFIED) ( INT )
  10. PREGABALIN [Concomitant]
     Active Substance: PREGABALIN
     Indication: Product used for unknown indication
     Dosage: ROUTE OF ADMIN.- ORAL
  11. GRANISETRON [Concomitant]
     Active Substance: GRANISETRON
     Indication: Product used for unknown indication
     Dosage: ROUTE OF ADMIN.- INTRAVENOUS (NOT OTHERWISE SPECIFIED) ( INT )
  12. Olmesartan medoxomilo + Hydrochlorothiazide [Concomitant]
     Indication: Product used for unknown indication
     Dosage: ROUTE OF ADMIN.- ORAL
  13. Daflon 1000 [Concomitant]
     Indication: Product used for unknown indication
     Dosage: FORM OF ADMIN.- FILM-COATED TABLET?ROUTE OF ADMIN.- ORAL

REACTIONS (4)
  - Tachycardia [Recovered/Resolved]
  - Hyperhidrosis [Recovered/Resolved]
  - Stridor [Recovered/Resolved]
  - Pharyngeal hypoaesthesia [Recovered/Resolved]

NARRATIVE: CASE EVENT DATE: 20231030
